FAERS Safety Report 16411143 (Version 2)
Quarter: 2019Q2

REPORT INFORMATION
  Report Type: Spontaneous
  Country: US (occurrence: US)
  Receive Date: 20190610
  Receipt Date: 20190621
  Transmission Date: 20190711
  Serious: Yes (Other)
  Sender: FDA-Public Use
  Company Number: US-ASTRAZENECA-2018SF26152

PATIENT
  Age: 534 Month
  Sex: Female

DRUGS (13)
  1. PRILOSEC [Suspect]
     Active Substance: OMEPRAZOLE MAGNESIUM
     Route: 048
     Dates: start: 200501, end: 201612
  2. REGLAN [Concomitant]
     Active Substance: METOCLOPRAMIDE HYDROCHLORIDE
  3. LISINOPRIL. [Concomitant]
     Active Substance: LISINOPRIL
  4. NEXIUM [Suspect]
     Active Substance: ESOMEPRAZOLE MAGNESIUM
     Route: 048
     Dates: start: 20050101, end: 20161231
  5. PREVACID [Suspect]
     Active Substance: LANSOPRAZOLE
     Route: 065
     Dates: start: 200501, end: 201612
  6. PROTONIX [Suspect]
     Active Substance: PANTOPRAZOLE SODIUM
     Route: 065
     Dates: start: 20070115, end: 20101201
  7. XENICAL [Concomitant]
     Active Substance: ORLISTAT
  8. PROTONIX [Suspect]
     Active Substance: PANTOPRAZOLE SODIUM
     Route: 065
     Dates: start: 200501, end: 201612
  9. LASIX [Concomitant]
     Active Substance: FUROSEMIDE
  10. PREVACID [Suspect]
     Active Substance: LANSOPRAZOLE
     Route: 065
     Dates: start: 20050202, end: 20050303
  11. NEXIUM [Suspect]
     Active Substance: ESOMEPRAZOLE MAGNESIUM
     Route: 048
     Dates: start: 200501, end: 201612
  12. PRILOSEC [Suspect]
     Active Substance: OMEPRAZOLE MAGNESIUM
     Route: 048
     Dates: start: 20050101, end: 20161231
  13. PROTONIX [Suspect]
     Active Substance: PANTOPRAZOLE SODIUM
     Route: 048
     Dates: start: 20080718

REACTIONS (10)
  - Renal injury [Unknown]
  - Renal failure [Unknown]
  - Tubulointerstitial nephritis [Unknown]
  - Nephrogenic anaemia [Unknown]
  - Acute kidney injury [Unknown]
  - Chronic kidney disease-mineral and bone disorder [Unknown]
  - End stage renal disease [Unknown]
  - Dyspepsia [Unknown]
  - Chronic kidney disease [Unknown]
  - Hyperparathyroidism secondary [Unknown]

NARRATIVE: CASE EVENT DATE: 200502
